FAERS Safety Report 4868762-7 (Version None)
Quarter: 2005Q4

REPORT INFORMATION
  Report Type: 
  Country: None (occurrence: None)
  Receive Date: 20051223
  Receipt Date: 20051214
  Transmission Date: 20060501
  Serious: Yes (Death, Other)
  Sender: FDA-Public Use
  Company Number: 220200

PATIENT
  Age: 49 Year
  Sex: Male

DRUGS (4)
  1. MABTHERA(RITUXIMAB) CONC FOR SOLUTION FOR INFUSION [Suspect]
  2. CYCLOPHOSPHAMIDE [Suspect]
  3. DOXORUBICIN (DOXORUBICIN/DOXORUBICINE HYDROCHLORIDE [Suspect]
  4. VINCRISTINE [Suspect]

REACTIONS (7)
  - ANAEMIA [None]
  - BLOOD LACTATE DEHYDROGENASE INCREASED [None]
  - CYTOMEGALOVIRUS INFECTION [None]
  - FEBRILE NEUTROPENIA [None]
  - GASTRIC ULCER [None]
  - LUNG CONSOLIDATION [None]
  - PNEUMOCYSTIS JIROVECI PNEUMONIA [None]
